FAERS Safety Report 13814786 (Version 3)
Quarter: 2017Q3

REPORT INFORMATION
  Report Type: Report from Study
  Country: None (occurrence: DE)
  Receive Date: 20170731
  Receipt Date: 20170811
  Transmission Date: 20171127
  Serious: Yes (Hospitalization)
  Sender: FDA-Public Use
  Company Number: DE-ABBVIE-17P-062-2053060-00

PATIENT
  Age: 60 Year
  Sex: Female
  Weight: 71 kg

DRUGS (5)
  1. EXVIERA [Suspect]
     Active Substance: DASABUVIR
     Indication: CHRONIC HEPATITIS C
     Route: 048
     Dates: start: 20161208, end: 20170125
  2. RIBAVIRIN. [Suspect]
     Active Substance: RIBAVIRIN
     Indication: CHRONIC HEPATITIS C
     Route: 048
     Dates: start: 20161208, end: 20170104
  3. CLOPIDOGREL [Concomitant]
     Active Substance: CLOPIDOGREL BISULFATE
     Indication: PRODUCT USED FOR UNKNOWN INDICATION
  4. RAMIPRIL. [Concomitant]
     Active Substance: RAMIPRIL
     Indication: PRODUCT USED FOR UNKNOWN INDICATION
  5. VIEKIRAX [Suspect]
     Active Substance: OMBITASVIR\PARITAPREVIR\RITONAVIR
     Indication: CHRONIC HEPATITIS C
     Dosage: 150 /100 / 25 MG
     Route: 048
     Dates: start: 20161208, end: 20170125

REACTIONS (17)
  - Peripheral artery occlusion [Unknown]
  - Artery dissection [Recovered/Resolved]
  - Induration [Unknown]
  - Haemorrhage [Recovered/Resolved]
  - Intra-abdominal haematoma [Unknown]
  - Intermittent claudication [Unknown]
  - Pain in extremity [Unknown]
  - Arterial stenosis [Unknown]
  - Groin pain [Unknown]
  - Blood pressure increased [Unknown]
  - Peripheral artery angioplasty [Unknown]
  - Peripheral artery stenosis [Unknown]
  - Pelvic pain [Unknown]
  - Flank pain [Recovered/Resolved]
  - Artery dissection [Recovered/Resolved]
  - Hypoaesthesia [Unknown]
  - Arteriosclerosis [Unknown]

NARRATIVE: CASE EVENT DATE: 20170719
